FAERS Safety Report 4547090-3 (Version None)
Quarter: 2005Q1

REPORT INFORMATION
  Report Type: 
  Country: None (occurrence: None)
  Receive Date: 20050105
  Receipt Date: 20041229
  Transmission Date: 20050727
  Serious: Yes (Hospitalization)
  Sender: FDA-Public Use
  Company Number: 2004UW26241

PATIENT
  Age: 24 Month
  Sex: Male
  Weight: 12.7 kg

DRUGS (4)
  1. PULMICORT RESPULES [Suspect]
     Indication: ASTHMA
     Dosage: 0.25 MG BID IH
     Route: 055
     Dates: start: 20020101
  2. PULMICORT RESPULES [Suspect]
     Indication: ASTHMA
     Dosage: .25 MG 3-4 TIMES DAILY
     Dates: end: 20020101
  3. ALBUTEROL [Concomitant]
  4. ORAPRED [Concomitant]

REACTIONS (3)
  - DISEASE RECURRENCE [None]
  - PNEUMONIA [None]
  - RESPIRATORY TRACT INFECTION [None]
